FAERS Safety Report 6542272-3 (Version None)
Quarter: 2010Q1

REPORT INFORMATION
  Report Type: 
  Country: None (occurrence: None)
  Receive Date: 20100114
  Receipt Date: 20100114
  Transmission Date: 20100710
  Serious: Yes (Hospitalization)
  Sender: FDA-Public Use
  Company Number: None

PATIENT
  Sex: Female
  Weight: 50.5 kg

DRUGS (10)
  1. ABRAXANE [Suspect]
     Indication: NEOPLASM MALIGNANT
     Dosage: 146 MG D1 D8 D15/CYCLE  042
     Dates: start: 20091123, end: 20091221
  2. VANDETANIB [Suspect]
     Indication: NEOPLASM MALIGNANT
     Dosage: 300 MG QD 047
     Dates: start: 20091123, end: 20091228
  3. METFORMIN HYDROCHLORIDE [Concomitant]
  4. COMPAZINE [Concomitant]
  5. BENADRYL [Concomitant]
  6. ZOFRAN [Concomitant]
  7. ELAVIL [Concomitant]
  8. REGLAN [Concomitant]
  9. ZYRTEC [Concomitant]
  10. PREVACID [Concomitant]

REACTIONS (1)
  - ENTEROCUTANEOUS FISTULA [None]
